FAERS Safety Report 9394441 (Version 1)
Quarter: 2013Q3

REPORT INFORMATION
  Report Type: Spontaneous
  Country: US (occurrence: None)
  Receive Date: 20130709
  Receipt Date: 20130709
  Transmission Date: 20140515
  Serious: Yes (Life-Threatening, Hospitalization, Disabling, Other)
  Sender: FDA-Public Use
  Company Number: None

PATIENT
  Age: 70 Year
  Sex: Male
  Weight: 88.91 kg

DRUGS (12)
  1. CARVEDILOL [Suspect]
     Indication: DRUG THERAPY
     Dosage: 2 TAB DAILY AM, PM PO
     Route: 048
     Dates: start: 20080814, end: 20100622
  2. VALSARRTAN HCTZ [Concomitant]
  3. METFORMIN HCL [Concomitant]
  4. DOXAZOSIN [Concomitant]
  5. NAMANDA [Concomitant]
  6. ASA [Concomitant]
  7. PROCERA AVH MEMORY [Concomitant]
  8. FLAXSEED [Concomitant]
  9. B-12 [Concomitant]
  10. VIT E [Concomitant]
  11. GINKGO BILOBA [Concomitant]
  12. D3-5000IU [Concomitant]

REACTIONS (4)
  - Crying [None]
  - Confusional state [None]
  - Headache [None]
  - Incorrect dose administered [None]
